FAERS Safety Report 23653755 (Version 1)
Quarter: 2024Q1

REPORT INFORMATION
  Report Type: Spontaneous
  Country: US (occurrence: US)
  Receive Date: 20240320
  Receipt Date: 20240320
  Transmission Date: 20240409
  Serious: Yes (Life-Threatening, Hospitalization, Other)
  Sender: FDA-Public Use
  Company Number: US-PFIZER INC-2021733969

PATIENT
  Age: 15 Year
  Sex: Male
  Weight: 80 kg

DRUGS (32)
  1. BENEFIX [Suspect]
     Active Substance: COAGULATION FACTOR IX RECOMBINANT HUMAN\ISOPROPYL ALCOHOL
     Indication: Factor IX deficiency
     Dosage: UNK, AS NEEDED, (PRN)
     Dates: end: 2014
  2. BENEFIX [Suspect]
     Active Substance: COAGULATION FACTOR IX RECOMBINANT HUMAN\ISOPROPYL ALCOHOL
     Indication: Von Willebrand^s disease
     Dosage: UNK
     Dates: start: 20210314, end: 20210314
  3. BENEFIX [Suspect]
     Active Substance: COAGULATION FACTOR IX RECOMBINANT HUMAN\ISOPROPYL ALCOHOL
     Dosage: 100 IU ONCE
     Dates: start: 20210315, end: 20210315
  4. BENEFIX [Suspect]
     Active Substance: COAGULATION FACTOR IX RECOMBINANT HUMAN\ISOPROPYL ALCOHOL
     Dosage: UNK
  5. BENEFIX [Suspect]
     Active Substance: COAGULATION FACTOR IX RECOMBINANT HUMAN\ISOPROPYL ALCOHOL
     Dosage: VARIED DOSING AND FREQUENCY
     Dates: start: 2014, end: 20210311
  6. ALPROLIX [Suspect]
     Active Substance: EFTRENONACOG ALFA
     Indication: Factor IX deficiency
     Dosage: 40 IU/KG, (40 IU/KG ALPROLIX OVER 1 HOUR) IV NOS
     Route: 042
     Dates: start: 20210304, end: 20210314
  7. ALPROLIX [Suspect]
     Active Substance: EFTRENONACOG ALFA
     Indication: Prophylaxis
     Dosage: 80 IU/KG, WEEKLY, (QW, RECEIVED TOTAL 222 DOSES), IV NOS)
     Route: 042
     Dates: start: 201602, end: 202103
  8. ALPROLIX [Suspect]
     Active Substance: EFTRENONACOG ALFA
     Indication: Traumatic haemorrhage
     Dosage: 100 IU/KG
  9. ALPROLIX [Suspect]
     Active Substance: EFTRENONACOG ALFA
     Indication: Factor IX deficiency
     Dosage: 4 IU/KG, (4 IU/KG/HR PRIOR TO START OF SURGERY)
  10. ALPROLIX [Suspect]
     Active Substance: EFTRENONACOG ALFA
     Indication: Von Willebrand^s disease
     Dosage: 35 IU/KG, (35 IU/KG IMMEDIATELY FOLLOWING SURGERY)
  11. ALPROLIX [Suspect]
     Active Substance: EFTRENONACOG ALFA
     Dosage: UNK, (4IU/KG/HR ALONG WITH APPROXIMATELY 40 IU/KG VWF:RCO HUMATE-P
  12. ALPROLIX [Suspect]
     Active Substance: EFTRENONACOG ALFA
     Dosage: 50 IU/KG, (BOLUS AT DISCHARGE)
  13. ALPROLIX [Suspect]
     Active Substance: EFTRENONACOG ALFA
     Dosage: 4 IU/KG, (CONTINUOUS INFUSION AT 4 IU/KG/HR )
  14. ALPROLIX [Suspect]
     Active Substance: EFTRENONACOG ALFA
     Dosage: 40 IU/KG, (OVER 1 HOUR WITHOUT SYMPTOMS)
  15. ALPROLIX [Suspect]
     Active Substance: EFTRENONACOG ALFA
     Dosage: UNK UNK, AS NEEDED (PRN) IV NOS
     Route: 042
     Dates: start: 2014
  16. ALPROLIX [Suspect]
     Active Substance: EFTRENONACOG ALFA
     Dosage: VARIED DOSING + FREQUENCY
     Dates: start: 2014, end: 20210311
  17. ALPROLIX [Suspect]
     Active Substance: EFTRENONACOG ALFA
     Dosage: 50 IU/KG
     Route: 042
     Dates: start: 20210307
  18. ALPROLIX [Suspect]
     Active Substance: EFTRENONACOG ALFA
     Dosage: 44 IU
     Dates: start: 20210313
  19. ALPROLIX [Suspect]
     Active Substance: EFTRENONACOG ALFA
     Dosage: 44 IU/KG
     Dates: start: 20210314
  20. ALPHANINE [FACTOR IX] [Concomitant]
     Dosage: UNK
     Dates: start: 20210316, end: 20210316
  21. ALPHANINE [FACTOR IX] [Concomitant]
     Dosage: UNK
     Dates: start: 20210318, end: 20210318
  22. ALPHANINE [FACTOR IX] [Concomitant]
     Dosage: UNK
     Dates: start: 20210322, end: 20210322
  23. ALPHANINE [FACTOR IX] [Concomitant]
     Dosage: 100 IU
     Dates: start: 20210316
  24. ALPHANINE [FACTOR IX] [Concomitant]
     Dosage: 30 IU/KG, (FOLLOWED BY APPRPX.30 IU/KG OF ALPHANINE WITHOUT SUBSEQUENT ISSUES)
  25. ALPHANINE [FACTOR IX] [Concomitant]
     Dosage: UNK, (TEST DOSE OF 100 TOTAL IU FOLLOWEWD BY APPROX. 50 IU/KG OVER AN HOUR)
     Dates: start: 20210318
  26. ALPHANINE [FACTOR IX] [Concomitant]
     Dosage: UNK
     Dates: start: 20210322
  27. ALPHANINE [FACTOR IX] [Concomitant]
     Dosage: UNK
     Dates: start: 20210316
  28. TRANEXAMIC ACID [Concomitant]
     Active Substance: TRANEXAMIC ACID
     Dosage: 1300 MG, (1300 MG TIP TO BE TAKEN FOR 21 DAYS)
     Dates: start: 20210304, end: 20210505
  29. TRANEXAMIC ACID [Concomitant]
     Active Substance: TRANEXAMIC ACID
     Dosage: UNK
     Route: 048
     Dates: start: 20210309
  30. NOVOSEVEN [Concomitant]
     Active Substance: COAGULATION FACTOR VIIA RECOMBINANT HUMAN
     Dosage: 90MCG/KG (ONE DOSE)
     Dates: start: 20210315, end: 20210415
  31. HEMOSTATIC [Concomitant]
  32. TRANEXAMIC ACID [Concomitant]
     Active Substance: TRANEXAMIC ACID
     Route: 042

REACTIONS (11)
  - Angioedema [Recovered/Resolved]
  - Post procedural haemorrhage [Recovered/Resolved]
  - Postoperative thrombosis [Recovered/Resolved]
  - Pharyngeal swelling [Recovered/Resolved]
  - Swollen tongue [Recovered/Resolved]
  - Dysphagia [Recovered/Resolved]
  - Stridor [Recovered/Resolved]
  - Palatal oedema [Recovered/Resolved]
  - Anaphylactic reaction [Recovered/Resolved]
  - Pruritus [Recovered/Resolved]
  - Tongue oedema [Unknown]

NARRATIVE: CASE EVENT DATE: 20210309
